FAERS Safety Report 10576147 (Version 1)
Quarter: 2014Q4

REPORT INFORMATION
  Report Type: Spontaneous
  Country: US (occurrence: None)
  Receive Date: 20141110
  Receipt Date: 20141110
  Transmission Date: 20150529
  Serious: Yes (Other)
  Sender: FDA-Public Use
  Company Number: None

PATIENT
  Age: 49 Year
  Sex: Female

DRUGS (1)
  1. CIPROFLOXACIN. [Suspect]
     Active Substance: CIPROFLOXACIN
     Indication: URINARY TRACT INFECTION
     Dosage: ONE TABLET?VARIOUS DATES OVER SEVERAL YEARS
     Route: 048

REACTIONS (9)
  - Vascular rupture [None]
  - Hearing impaired [None]
  - Tendonitis [None]
  - Eye infection [None]
  - Paraesthesia [None]
  - Ocular vascular disorder [None]
  - Tinnitus [None]
  - Hypoaesthesia [None]
  - Neuropathy peripheral [None]

NARRATIVE: CASE EVENT DATE: 20141109
